FAERS Safety Report 15387323 (Version 2)
Quarter: 2018Q3

REPORT INFORMATION
  Report Type: Report from Study
  Country: US (occurrence: US)
  Receive Date: 20180914
  Receipt Date: 20180921
  Transmission Date: 20181010
  Serious: Yes (Hospitalization)
  Sender: FDA-Public Use
  Company Number: US-EISAI MEDICAL RESEARCH-EC-2018-044071

PATIENT
  Sex: Male

DRUGS (2)
  1. LENVIMA [Suspect]
     Active Substance: LENVATINIB
     Dosage: DOSE REDUCED
     Route: 048
     Dates: start: 201808, end: 20180827
  2. LENVIMA [Suspect]
     Active Substance: LENVATINIB
     Indication: CHOLANGIOCARCINOMA
     Dosage: UNKNOWN
     Route: 048
     Dates: end: 201807

REACTIONS (7)
  - Asthenia [Not Recovered/Not Resolved]
  - Malignant neoplasm progression [Not Recovered/Not Resolved]
  - Confusional state [Not Recovered/Not Resolved]
  - Thyroid function test abnormal [Recovered/Resolved]
  - Delirium [Not Recovered/Not Resolved]
  - Decreased appetite [Not Recovered/Not Resolved]
  - Drug ineffective [Not Recovered/Not Resolved]

NARRATIVE: CASE EVENT DATE: 2018
